FAERS Safety Report 9799579 (Version 2)
Quarter: 2015Q3

REPORT INFORMATION
  Report Type: Spontaneous
  Country: US (occurrence: US)
  Receive Date: 20140106
  Receipt Date: 20150806
  Transmission Date: 20151125
  Serious: No
  Sender: FDA-Public Use
  Company Number: US-GILEAD-2010-0031346

PATIENT
  Age: 49 Year
  Sex: Male
  Weight: 68.49 kg

DRUGS (24)
  1. DIFLUCAN [Concomitant]
     Active Substance: FLUCONAZOLE
  2. ZITHROMAX [Concomitant]
     Active Substance: AZITHROMYCIN DIHYDRATE
  3. SELZENTRY [Concomitant]
     Active Substance: MARAVIROC
  4. CLARITIN [Concomitant]
     Active Substance: LORATADINE
  5. DRONABINOL. [Concomitant]
     Active Substance: DRONABINOL
  6. COMPAZINE [Concomitant]
     Active Substance: PROCHLORPERAZINE MALEATE
  7. OXYCONTIN [Concomitant]
     Active Substance: OXYCODONE HYDROCHLORIDE
  8. ATIVAN [Concomitant]
     Active Substance: LORAZEPAM
  9. ADCIRCA [Concomitant]
     Active Substance: TADALAFIL
  10. LASIX [Concomitant]
     Active Substance: FUROSEMIDE
  11. OXYCODONE [Concomitant]
     Active Substance: OXYCODONE
  12. MEPHYTON [Concomitant]
     Active Substance: PHYTONADIONE
  13. PERCOCET [Concomitant]
     Active Substance: ACETAMINOPHEN\OXYCODONE HYDROCHLORIDE
  14. PANCREASE MT 10 EC CAP [Concomitant]
  15. TRAZODONE [Concomitant]
     Active Substance: TRAZODONE HYDROCHLORIDE
  16. INTELENCE [Concomitant]
     Active Substance: ETRAVIRINE
  17. LETAIRIS [Suspect]
     Active Substance: AMBRISENTAN
     Indication: PULMONARY ARTERIAL HYPERTENSION
     Route: 048
     Dates: start: 20100813
  18. NEXIUM [Concomitant]
     Active Substance: ESOMEPRAZOLE MAGNESIUM
  19. TEMAZEPAM. [Concomitant]
     Active Substance: TEMAZEPAM
  20. POTASSIUM CHLORIDE. [Concomitant]
     Active Substance: POTASSIUM CHLORIDE
  21. CENTRUM COMPLETE [Concomitant]
  22. BL VITAMIN B12 [Concomitant]
  23. BL VITAMIN A [Concomitant]
  24. RANITIDINE [Concomitant]
     Active Substance: RANITIDINE\RANITIDINE HYDROCHLORIDE

REACTIONS (5)
  - Diarrhoea [Unknown]
  - Nausea [Unknown]
  - Lethargy [Unknown]
  - Oedema [Unknown]
  - Vomiting [Unknown]
